FAERS Safety Report 11139689 (Version 1)
Quarter: 2015Q2

REPORT INFORMATION
  Report Type: Spontaneous
  Country: US (occurrence: None)
  Receive Date: 20150526
  Receipt Date: 20150526
  Transmission Date: 20150821
  Serious: Yes (Disabling)
  Sender: FDA-Public Use
  Company Number: None

PATIENT
  Age: 42 Year
  Sex: Female
  Weight: 58.97 kg

DRUGS (5)
  1. MULTI VITAMIN [Concomitant]
     Active Substance: VITAMINS
  2. NEULASTA [Suspect]
     Active Substance: PEGFILGRASTIM
     Indication: BLOOD DISORDER
     Dosage: A DAY AFTER CHEMO
     Dates: start: 20140624, end: 20140828
  3. NEULASTA [Suspect]
     Active Substance: PEGFILGRASTIM
     Indication: PROPHYLAXIS
     Dosage: A DAY AFTER CHEMO
     Dates: start: 20140624, end: 20140828
  4. NEULASTA [Suspect]
     Active Substance: PEGFILGRASTIM
     Indication: PYREXIA
     Dosage: A DAY AFTER CHEMO
     Dates: start: 20140624, end: 20140828
  5. VITAMIN D [Concomitant]
     Active Substance: CHOLECALCIFEROL

REACTIONS (2)
  - Arthralgia [None]
  - Arthropathy [None]

NARRATIVE: CASE EVENT DATE: 20140626
